FAERS Safety Report 22264450 (Version 2)
Quarter: 2023Q2

REPORT INFORMATION
  Report Type: Report from Study
  Country: US (occurrence: US)
  Receive Date: 20230428
  Receipt Date: 20230609
  Transmission Date: 20230722
  Serious: Yes (Death)
  Sender: FDA-Public Use
  Company Number: US-DSJP-DSU-2023-116579

PATIENT
  Age: 67 Year
  Sex: Female

DRUGS (21)
  1. ENHERTU [Suspect]
     Active Substance: FAM-TRASTUZUMAB DERUXTECAN-NXKI
     Indication: Pancreatic carcinoma
     Dosage: 408 MG, ONCE EVERY 3 WK
     Route: 042
     Dates: start: 20230208, end: 20230330
  2. ENHERTU [Suspect]
     Active Substance: FAM-TRASTUZUMAB DERUXTECAN-NXKI
     Indication: Pancreatic carcinoma
  3. TYLENOL [Concomitant]
     Active Substance: ACETAMINOPHEN
     Indication: Oral pain
     Dosage: 1000 MG, BID, AS NEEDED
     Route: 048
  4. LOMOTIL [Concomitant]
     Active Substance: ATROPINE SULFATE\DIPHENOXYLATE HYDROCHLORIDE
     Indication: Product used for unknown indication
     Dosage: 2.5-0.025 MG, 1 TABLET, AS NEEDED
     Route: 048
  5. CYMBALTA [Concomitant]
     Active Substance: DULOXETINE HYDROCHLORIDE
     Indication: Product used for unknown indication
     Dosage: 1 CAPSULE, QD (EVERY EVENING)
     Route: 048
     Dates: start: 20220823
  6. FAMOTIDINE [Concomitant]
     Active Substance: FAMOTIDINE
     Indication: Product used for unknown indication
     Dosage: 20 MG, BID
     Route: 048
  7. NEURONTIN [Concomitant]
     Active Substance: GABAPENTIN
     Indication: Product used for unknown indication
     Dosage: 2 CAPSULES IN AM AND 2 CAPSULES IN PM
     Route: 048
     Dates: start: 20221109
  8. TOUJEO [Concomitant]
     Active Substance: INSULIN GLARGINE
     Indication: Product used for unknown indication
     Dosage: 25UNITS ONCE DAILY AT BEDTIME, QD
     Route: 065
     Dates: start: 20221216
  9. HUMALOG HD KWIKPEN [Concomitant]
     Indication: Product used for unknown indication
     Dosage: BID AS NEEDED
     Route: 058
     Dates: start: 20221109
  10. EMLA [Concomitant]
     Active Substance: LIDOCAINE\PRILOCAINE
     Indication: Product used for unknown indication
     Dosage: 30-45 MINUTES PRIOR TO INFUSIONS, AS NEEDED
     Route: 061
     Dates: start: 20221117
  11. IMODIUM [Concomitant]
     Active Substance: LOPERAMIDE HYDROCHLORIDE
     Indication: Diarrhoea
     Dosage: 4 MG, AS NEEDED
     Route: 048
  12. ATIVAN [Concomitant]
     Active Substance: LORAZEPAM
     Indication: Product used for unknown indication
     Dosage: 1 TABLET BY MOUTH EVERY MORNING AND 2 TABLETS AT BEDTIME
     Route: 048
     Dates: start: 20221103
  13. MAGNESIUM OXIDE [Concomitant]
     Active Substance: MAGNESIUM OXIDE
     Indication: Product used for unknown indication
     Dosage: 1 TABLET, QD
     Route: 048
     Dates: start: 20221227
  14. RITALIN [Concomitant]
     Active Substance: METHYLPHENIDATE HYDROCHLORIDE
     Indication: Product used for unknown indication
     Dosage: 20 MG, BID
     Route: 048
     Dates: start: 20230327
  15. MINERALS\VITAMINS [Concomitant]
     Active Substance: MINERALS\VITAMINS
     Indication: Product used for unknown indication
     Dosage: 2 GUMMIES EACH EVERY MORNING
     Route: 048
  16. MYCOSTATIN [Concomitant]
     Active Substance: NYSTATIN
     Indication: Product used for unknown indication
     Dosage: 1 G, TID
     Route: 061
     Dates: start: 20230110
  17. ZYPREXA [Concomitant]
     Active Substance: OLANZAPINE
     Indication: Product used for unknown indication
     Dosage: 1 TABLET STARTING THE NIGHT AFTER CHEMOTHERAPY
     Route: 048
     Dates: start: 20230104
  18. ZOFRAN [Concomitant]
     Active Substance: ONDANSETRON HYDROCHLORIDE
     Indication: Vomiting
     Dosage: 1 TABLET, ONCE EVERY 8HR AS NEEDED
     Route: 048
     Dates: start: 20221117
  19. KLOR-CON M10 [Concomitant]
     Active Substance: POTASSIUM CHLORIDE
     Indication: Product used for unknown indication
     Dosage: 2 TABLETS, BID
     Route: 048
     Dates: start: 20230215
  20. COMPAZINE [Concomitant]
     Active Substance: PROCHLORPERAZINE MALEATE
     Indication: Vomiting
     Dosage: 1 TABLET, ONCE EVERY 6HR AS NEEDED
     Route: 048
     Dates: start: 20221117
  21. PERI-COLACE [DOCUSATE SODIUM;SENNOSIDE A+B] [Concomitant]
     Indication: Product used for unknown indication
     Dosage: 8.6-50 MG PER TABLET, NIGHTLY,  AS NEEDED
     Route: 048

REACTIONS (3)
  - Disease progression [Fatal]
  - Jaundice cholestatic [Fatal]
  - Off label use [Unknown]

NARRATIVE: CASE EVENT DATE: 20230208
